FAERS Safety Report 4886173-5 (Version None)
Quarter: 2006Q1

REPORT INFORMATION
  Report Type: 
  Country: None (occurrence: None)
  Receive Date: 20060120
  Receipt Date: 20060112
  Transmission Date: 20060701
  Serious: Yes (Life-Threatening, Hospitalization)
  Sender: FDA-Public Use
  Company Number: PL-GLAXOSMITHKLINE-B0406619A

PATIENT
  Age: 77 Year
  Sex: Male

DRUGS (14)
  1. FONDAPARINUX SODIUM [Suspect]
     Dosage: 2.5MG PER DAY
     Route: 058
     Dates: start: 20040813, end: 20040820
  2. ASPIRIN [Concomitant]
  3. CLOPIDOGREL [Concomitant]
  4. PERINDOPRIL [Concomitant]
  5. AUGMENTIN '125' [Concomitant]
  6. TICLOPIDINE HCL [Concomitant]
  7. OMEPRAZOLE [Concomitant]
  8. SPIRONOLACTONE [Concomitant]
  9. KETOPROFEN [Concomitant]
  10. SIMVASTATIN [Concomitant]
  11. CEPHALEXIN [Concomitant]
  12. METOPROLOL [Concomitant]
  13. AMIODARONE HCL [Concomitant]
  14. ENOXAPARIN [Concomitant]

REACTIONS (2)
  - DYSPNOEA [None]
  - HAEMOTHORAX [None]
